FAERS Safety Report 12348393 (Version 1)
Quarter: 2016Q2

REPORT INFORMATION
  Report Type: Spontaneous
  Country: US (occurrence: US)
  Receive Date: 20160509
  Receipt Date: 20160509
  Transmission Date: 20160815
  Serious: Yes (Other)
  Sender: FDA-Public Use
  Company Number: US-JNJFOC-20160503452

PATIENT

DRUGS (1)
  1. RISPERIDONE. [Suspect]
     Active Substance: RISPERIDONE
     Indication: AUTISM SPECTRUM DISORDER
     Dosage: MAXIMUM DOSE: 1.75 MG/DAY FOR 14-20 KG, 2.5 MG/DAY FOR {20 AND {/=45 KG AND 3.5 MG/DAY FOR }45 KG
     Route: 065

REACTIONS (2)
  - Metabolic syndrome [Unknown]
  - Increased appetite [Unknown]
